FAERS Safety Report 5135576-2 (Version None)
Quarter: 2006Q4

REPORT INFORMATION
  Report Type: 
  Country: None (occurrence: None)
  Receive Date: 20061020
  Receipt Date: 20060810
  Transmission Date: 20070319
  Serious: Yes (Hospitalization, Disabling, Other)
  Sender: FDA-Public Use
  Company Number: 2006050722

PATIENT
  Age: 65 Year
  Sex: Male

DRUGS (2)
  1. BEXTRA [Suspect]
     Indication: ARTHRITIS
     Dosage: 10 MG (10 MG,1 IN 1 D)
     Dates: start: 20041101
  2. ALTACE [Concomitant]

REACTIONS (6)
  - BEDRIDDEN [None]
  - ERYTHEMA MULTIFORME [None]
  - JOINT INJURY [None]
  - MALE SEXUAL DYSFUNCTION [None]
  - SKIN DISORDER [None]
  - STEVENS-JOHNSON SYNDROME [None]
